FAERS Safety Report 4822083-7 (Version None)
Quarter: 2005Q4

REPORT INFORMATION
  Report Type: 
  Country: None (occurrence: None)
  Receive Date: 20051103
  Receipt Date: 20051026
  Transmission Date: 20060501
  Serious: Yes (Other)
  Sender: FDA-Public Use
  Company Number: JP-2005-022272

PATIENT
  Age: 78 Year
  Sex: Female

DRUGS (1)
  1. PROSCOPE 300(IOPROMIDE) INFUSION [Suspect]
     Indication: COMPUTERISED TOMOGRAM
     Dosage: 100ML, 1 DOSE, INTRAVENOUS
     Route: 042
     Dates: start: 20051024, end: 20051024

REACTIONS (1)
  - ANAPHYLACTIC SHOCK [None]
